FAERS Safety Report 4771708-3 (Version None)
Quarter: 2005Q3

REPORT INFORMATION
  Report Type: 
  Country: None (occurrence: None)
  Receive Date: 20050914
  Receipt Date: 20050830
  Transmission Date: 20060218
  Serious: Yes (Hospitalization)
  Sender: FDA-Public Use
  Company Number: B0390102A

PATIENT
  Age: 49 Year
  Sex: Male

DRUGS (8)
  1. RETROVIR [Suspect]
     Indication: HIV INFECTION
  2. ZIAGEN [Suspect]
     Indication: HIV INFECTION
  3. DIDANOSINE [Suspect]
     Indication: HIV INFECTION
  4. EPIVIR [Suspect]
  5. STAVUDINE [Suspect]
  6. INDINAIVR SULFATE (INDINAVIR SULFATE) [Suspect]
  7. NEVIRAPINE [Suspect]
  8. CO-TRIMOXAZOLE [Concomitant]

REACTIONS (8)
  - ABDOMINAL PAIN [None]
  - HYPOALBUMINAEMIA [None]
  - LACTIC ACIDOSIS [None]
  - NAUSEA [None]
  - PYREXIA [None]
  - TACHYCARDIA [None]
  - TACHYPNOEA [None]
  - VOMITING [None]
